FAERS Safety Report 5977733-9 (Version None)
Quarter: 2008Q4

REPORT INFORMATION
  Report Type: 
  Country: None (occurrence: None)
  Receive Date: 20081202
  Receipt Date: 20081202
  Transmission Date: 20090506
  Serious: Yes (Other)
  Sender: FDA-Public Use
  Company Number: None

PATIENT

DRUGS (1)
  1. METOPROLOL TARTRATE [Suspect]

REACTIONS (4)
  - ALOPECIA [None]
  - FATIGUE [None]
  - TACHYCARDIA [None]
  - WEIGHT INCREASED [None]
